FAERS Safety Report 5640981-1 (Version None)
Quarter: 2008Q1

REPORT INFORMATION
  Report Type: 
  Country: None (occurrence: None)
  Receive Date: 20080227
  Receipt Date: 20080218
  Transmission Date: 20080703
  Serious: Yes (Other)
  Sender: FDA-Public Use
  Company Number: JP-ASTRAZENECA-2008AP01227

PATIENT
  Age: 26668 Day
  Sex: Female
  Weight: 42 kg

DRUGS (9)
  1. IRESSA [Suspect]
     Indication: LUNG ADENOCARCINOMA
     Route: 048
     Dates: start: 20070501, end: 20080215
  2. LASIX [Suspect]
     Indication: OEDEMA PERIPHERAL
     Route: 048
     Dates: start: 20070417, end: 20080215
  3. RADIOTHERAPY [Suspect]
     Indication: BRAIN MASS
     Dates: start: 20061121
  4. WARFARIN SODIUM [Concomitant]
     Route: 048
     Dates: start: 20070219
  5. OMEPRAL [Concomitant]
     Route: 048
     Dates: start: 20070312, end: 20080215
  6. ALDACTONE [Concomitant]
     Route: 048
     Dates: start: 20070417
  7. MUCOSOLVAN [Concomitant]
     Route: 048
     Dates: start: 20070425
  8. MUCOSTA [Concomitant]
     Route: 048
  9. NITRAZEPAM [Concomitant]
     Route: 048

REACTIONS (1)
  - LEUKOENCEPHALOPATHY [None]
